FAERS Safety Report 6228924-3 (Version None)
Quarter: 2009Q2

REPORT INFORMATION
  Report Type: 
  Country: None (occurrence: None)
  Receive Date: 20090615
  Receipt Date: 20090604
  Transmission Date: 20091009
  Serious: Yes (Other)
  Sender: FDA-Public Use
  Company Number: US-ROCHE-636711

PATIENT
  Sex: Female

DRUGS (8)
  1. PEG-INTERFERON A-2A (RO 25-8310) [Suspect]
     Indication: HEPATITIS C
     Dosage: FORM: PRE-FILLED SYRINGES, WEEK 19
     Route: 065
     Dates: start: 20090128
  2. RIBAVIRIN [Suspect]
     Indication: HEPATITIS C
     Route: 065
     Dates: start: 20090128
  3. RIBAVIRIN [Suspect]
     Dosage: WEEK 19
     Route: 065
  4. DEPAKOTE [Concomitant]
  5. PAROXETINE HCL [Concomitant]
  6. DERMACARE [Concomitant]
     Dosage: DRUG: DESICARE
  7. XANAX [Concomitant]
  8. TYLENOL W/ CODEINE [Concomitant]

REACTIONS (2)
  - ALVEOLAR OSTEITIS [None]
  - TRANSFUSION [None]
